FAERS Safety Report 9002690 (Version 1)
Quarter: 2013Q1

REPORT INFORMATION
  Report Type: Spontaneous
  Country: US (occurrence: US)
  Receive Date: 20130107
  Receipt Date: 20130107
  Transmission Date: 20140127
  Serious: No
  Sender: FDA-Public Use
  Company Number: US-GLAXOSMITHKLINE-A0963578A

PATIENT
  Age: 55 Year
  Sex: Female
  Weight: 99.88 kg

DRUGS (5)
  1. BENLYSTA [Suspect]
     Indication: SYSTEMIC LUPUS ERYTHEMATOSUS
     Dosage: 1000MG EVERY 28 DAYS
     Route: 042
     Dates: start: 20111007
  2. LEVOTHROID [Concomitant]
     Indication: HYPOTHYROIDISM
     Dosage: 200MCG PER DAY
  3. PROZAC [Concomitant]
     Indication: ANXIETY
     Dosage: 20MG PER DAY
  4. VITAMIN D [Concomitant]
     Dosage: 2000IU PER DAY
  5. NORCO [Concomitant]
     Indication: PAIN

REACTIONS (4)
  - Local swelling [Not Recovered/Not Resolved]
  - Fluid retention [Not Recovered/Not Resolved]
  - Upper respiratory tract infection [Not Recovered/Not Resolved]
  - Sinusitis [Recovered/Resolved]
